FAERS Safety Report 8088771-7 (Version None)
Quarter: 2012Q1

REPORT INFORMATION
  Report Type: 
  Country: None (occurrence: None)
  Receive Date: 20120128
  Receipt Date: 20110606
  Transmission Date: 20120608
  Serious: No
  Sender: FDA-Public Use
  Company Number: US-ABBOTT-11P-163-0731013-00

PATIENT
  Sex: Male
  Weight: 149.82 kg

DRUGS (11)
  1. FLEXERIL [Concomitant]
     Indication: MUSCLE SPASMS
     Route: 048
  2. PROTONIX [Concomitant]
     Indication: GASTROOESOPHAGEAL REFLUX DISEASE
     Route: 048
  3. LORTAB [Concomitant]
     Indication: PAIN
     Route: 048
  4. OSTEO BI-FLEX [Concomitant]
     Indication: MINERAL SUPPLEMENTATION
     Route: 048
  5. TYLENOL-500 [Concomitant]
     Indication: PAIN
     Route: 048
  6. HUMIRA [Suspect]
     Indication: RHEUMATOID ARTHRITIS
     Route: 058
     Dates: start: 20110603
  7. CELEBREX [Concomitant]
     Indication: RHEUMATOID ARTHRITIS
     Route: 048
  8. BENICAR [Concomitant]
     Indication: HYPERTENSION
     Route: 048
  9. LIBRAX [Concomitant]
     Indication: IRRITABLE BOWEL SYNDROME
     Route: 048
  10. MULTI-VITAMINS [Concomitant]
     Indication: MINERAL SUPPLEMENTATION
     Route: 048
  11. IMIPRAMINE [Concomitant]
     Indication: DEPRESSION
     Route: 048

REACTIONS (4)
  - PAIN IN EXTREMITY [None]
  - MOVEMENT DISORDER [None]
  - INJECTION SITE PAIN [None]
  - SENSORY DISTURBANCE [None]
